FAERS Safety Report 9889810 (Version 2)
Quarter: 2014Q1

REPORT INFORMATION
  Report Type: Spontaneous
  Country: PL (occurrence: PL)
  Receive Date: 20140212
  Receipt Date: 20140303
  Transmission Date: 20141002
  Serious: Yes (Life-Threatening, Other)
  Sender: FDA-Public Use
  Company Number: PL-ROCHE-1347981

PATIENT
  Sex: Female
  Weight: 67.5 kg

DRUGS (12)
  1. ROACTEMRA [Suspect]
     Indication: RHEUMATOID ARTHRITIS
     Route: 042
     Dates: start: 20131216
  2. ROACTEMRA [Suspect]
     Route: 042
     Dates: start: 20140115
  3. ROMAZIC [Concomitant]
     Route: 065
     Dates: start: 20140207
  4. NIMESIL [Concomitant]
     Route: 065
     Dates: start: 20140207
  5. BISOCARD [Concomitant]
     Route: 065
     Dates: start: 20140207
  6. POLOCARD [Concomitant]
     Route: 065
     Dates: start: 20140207
  7. AREPLEX [Concomitant]
     Route: 065
     Dates: start: 20140207
  8. ANESTELOC [Concomitant]
     Route: 065
     Dates: start: 20140207
  9. METYPRED [Concomitant]
     Route: 048
     Dates: start: 20140207
  10. METHOTREXATE [Concomitant]
     Route: 065
     Dates: start: 20140207
  11. CIMZIA [Concomitant]
     Route: 058
     Dates: start: 20130903, end: 20131126
  12. AMLOZEK [Concomitant]
     Route: 048

REACTIONS (1)
  - Acute myocardial infarction [Recovering/Resolving]
